FAERS Safety Report 5586070-6 (Version None)
Quarter: 2007Q4

REPORT INFORMATION
  Report Type: 
  Country: None (occurrence: None)
  Receive Date: 20071205
  Receipt Date: 20070926
  Transmission Date: 20080405
  Serious: Yes (Other)
  Sender: FDA-Public Use
  Company Number: HQWYE341127SEP07

PATIENT
  Age: 50 Year
  Sex: Male

DRUGS (1)
  1. EFFEXOR XR [Suspect]
     Indication: ANXIETY
     Dosage: 75 MG 1X PER 1 DAY, ORAL ; ^75-150 MG DAILY^, ORAL
     Route: 048
     Dates: start: 20020101

REACTIONS (2)
  - HEPATIC ENZYME INCREASED [None]
  - JAUNDICE CHOLESTATIC [None]
